FAERS Safety Report 4537684-3 (Version None)
Quarter: 2004Q4

REPORT INFORMATION
  Report Type: 
  Country: None (occurrence: None)
  Receive Date: 20041216
  Receipt Date: 20040907
  Transmission Date: 20050328
  Serious: Yes (Hospitalization)
  Sender: FDA-Public Use
  Company Number: HQWYE875308SEP04

PATIENT
  Age: 16 Year
  Sex: Female

DRUGS (2)
  1. EFFEXOR XR [Suspect]
     Indication: DEPRESSION
     Dosage: SEE IMAGE
     Route: 048
     Dates: start: 20040901, end: 20040901
  2. DIET FORMULATIONS FOR TREATMENT OF OBESITY (DIET FORMULATIONS FOR TREA [Suspect]
     Dosage: ^A COUPLE OF DIET PILLS^ (OVERDOSE AMOUNT)

REACTIONS (3)
  - CONVULSION [None]
  - INTENTIONAL OVERDOSE [None]
  - SUICIDE ATTEMPT [None]
